FAERS Safety Report 14102977 (Version 1)
Quarter: 2017Q4

REPORT INFORMATION
  Report Type: Spontaneous
  Country: US (occurrence: US)
  Receive Date: 20171018
  Receipt Date: 20171018
  Transmission Date: 20180321
  Serious: Yes (Other)
  Sender: FDA-Public Use
  Company Number: US-BAUSCH-BL-2017-020284

PATIENT
  Sex: Female
  Weight: 79.45 kg

DRUGS (6)
  1. WELLBUTRIN XL [Suspect]
     Active Substance: BUPROPION HYDROCHLORIDE
     Indication: DEPRESSION
     Dosage: STARTED ON APPROXIMATELY 15 YEARS AGO?EXTENDED RELEASE TABLETS
     Route: 048
  2. DEXILANT [Concomitant]
     Active Substance: DEXLANSOPRAZOLE
     Indication: IRRITABLE BOWEL SYNDROME
  3. BENADRYL [Concomitant]
     Active Substance: DIPHENHYDRAMINE HYDROCHLORIDE
     Indication: HYPERSENSITIVITY
     Dosage: 1 AT BEDTIME
     Route: 048
  4. NABUMETONE. [Concomitant]
     Active Substance: NABUMETONE
     Indication: ARTHRITIS
     Dosage: STARTED ON A COUPLE OF YEARS AGO
     Route: 048
     Dates: start: 2015
  5. DEXILANT [Concomitant]
     Active Substance: DEXLANSOPRAZOLE
     Indication: GASTROOESOPHAGEAL REFLUX DISEASE
     Dosage: STARTED  ON 17 YEARS AGO
     Route: 048
  6. BUPROPION EXTENDED RELEASE TABLETS [Suspect]
     Active Substance: BUPROPION
     Indication: DEPRESSION
     Route: 048

REACTIONS (3)
  - Product substitution issue [None]
  - Insomnia [Unknown]
  - Suicidal ideation [Unknown]
